FAERS Safety Report 6541356-3 (Version None)
Quarter: 2010Q1

REPORT INFORMATION
  Report Type: 
  Country: None (occurrence: None)
  Receive Date: 20100118
  Receipt Date: 20100113
  Transmission Date: 20100710
  Serious: Yes (Death, Hospitalization, Other)
  Sender: FDA-Public Use
  Company Number: PHHY2010FR02048

PATIENT
  Age: 66 Year
  Sex: Male

DRUGS (3)
  1. CYCLOSPORINE [Suspect]
     Indication: RENAL TRANSPLANT
     Dosage: 7 MG/KG/DAY
  2. AZATHIOPRINE [Suspect]
     Indication: RENAL TRANSPLANT
     Dosage: 1 MG/KG/DAY
  3. PREDNISOLONE [Suspect]
     Indication: RENAL TRANSPLANT
     Dosage: 1 MG/KG/DAY

REACTIONS (11)
  - ASPERGILLOSIS [None]
  - BACTERIAL INFECTION [None]
  - CARDIOPULMONARY FAILURE [None]
  - HAEMOPTYSIS [None]
  - HAEMORRHAGIC INFARCTION [None]
  - LUNG LOBECTOMY [None]
  - LUNG NEOPLASM [None]
  - MUCORMYCOSIS [None]
  - PLEURAL EFFUSION [None]
  - PNEUMONIA NECROTISING [None]
  - PULMONARY MASS [None]
